FAERS Safety Report 10228493 (Version 1)
Quarter: 2014Q2

REPORT INFORMATION
  Report Type: Spontaneous
  Country: FR (occurrence: None)
  Receive Date: 20140502
  Receipt Date: 20140502
  Transmission Date: 20141212
  Serious: Yes (Hospitalization)
  Sender: FDA-Public Use
  Company Number: 2013-FR-005215

PATIENT
  Age: 1 Year
  Sex: Male

DRUGS (1)
  1. ERWINASE [Suspect]
     Indication: B PRECURSOR TYPE ACUTE LEUKAEMIA
     Dates: start: 20131123, end: 20131203

REACTIONS (1)
  - Hypersensitivity [None]
